FAERS Safety Report 15894453 (Version 4)
Quarter: 2019Q2

REPORT INFORMATION
  Report Type: Spontaneous
  Country: US (occurrence: US)
  Receive Date: 20190131
  Receipt Date: 20190430
  Transmission Date: 20190711
  Serious: Yes (Hospitalization, Other)
  Sender: FDA-Public Use
  Company Number: US-UNITED THERAPEUTICS-UNT-2019-001685

PATIENT
  Age: 72 Year
  Sex: Female
  Weight: 66.21 kg

DRUGS (3)
  1. REMODULIN [Suspect]
     Active Substance: TREPROSTINIL
     Indication: PULMONARY ARTERIAL HYPERTENSION
     Dosage: 0.110 ?G/KG, CONTINUING
     Route: 058
     Dates: start: 20170331
  2. ADCIRCA [Concomitant]
     Active Substance: TADALAFIL
     Indication: PULMONARY ARTERIAL HYPERTENSION
     Dosage: UNK
     Route: 065
  3. OPSUMIT [Concomitant]
     Active Substance: MACITENTAN
     Indication: PULMONARY ARTERIAL HYPERTENSION
     Dosage: UNK
     Route: 065

REACTIONS (10)
  - Tooth fracture [Unknown]
  - Facial bones fracture [Unknown]
  - Lower limb fracture [Unknown]
  - Fall [Recovered/Resolved with Sequelae]
  - Fluid retention [Unknown]
  - Urinary tract infection [Unknown]
  - Thyrotoxic crisis [Unknown]
  - Jaw fracture [Unknown]
  - Pulmonary arterial hypertension [Unknown]
  - Confusional state [Unknown]

NARRATIVE: CASE EVENT DATE: 201901
